FAERS Safety Report 18504079 (Version 25)
Quarter: 2025Q2

REPORT INFORMATION
  Report Type: Report from Study
  Country: US (occurrence: US)
  Receive Date: 20201113
  Receipt Date: 20250613
  Transmission Date: 20250717
  Serious: Yes (Other)
  Sender: TAKEDA
  Company Number: US-TAKEDA-2020TUS048320

PATIENT
  Age: 72 Year
  Sex: Female
  Weight: 85 kg

DRUGS (36)
  1. HUMAN IMMUNOGLOBULIN G [Suspect]
     Active Substance: HUMAN IMMUNOGLOBULIN G
     Indication: Immunodeficiency common variable
     Dosage: 8 GRAM, 1/WEEK
  2. INFLUENZA VIRUS VACCINE [Suspect]
     Active Substance: INFLUENZA VIRUS VACCINE
     Indication: Product used for unknown indication
  3. COVID-19 VACCINE NOS [Suspect]
     Active Substance: COVID-19 VACCINE
     Indication: Product used for unknown indication
  4. DIPHENHYDRAMINE [Concomitant]
     Active Substance: DIPHENHYDRAMINE
  5. KETOCONAZOLE [Concomitant]
     Active Substance: KETOCONAZOLE
  6. FIBER THERAPY (CALCIUM POLYCARBOPHIL) [Concomitant]
     Active Substance: CALCIUM POLYCARBOPHIL
  7. EPINEPHRINE [Concomitant]
     Active Substance: EPINEPHRINE
  8. SPIRONOLACTONE [Concomitant]
     Active Substance: SPIRONOLACTONE
  9. LEVOCETIRIZINE DIHYDROCHLORIDE [Concomitant]
     Active Substance: LEVOCETIRIZINE DIHYDROCHLORIDE
  10. TRELEGY ELLIPTA [Concomitant]
     Active Substance: FLUTICASONE FUROATE\UMECLIDINIUM BROMIDE\VILANTEROL TRIFENATATE
  11. OMEPRAZOLE [Concomitant]
     Active Substance: OMEPRAZOLE
  12. ACETAMINOPHEN [Concomitant]
     Active Substance: ACETAMINOPHEN
  13. SINGULAIR [Concomitant]
     Active Substance: MONTELUKAST SODIUM
  14. FLONASE ALLERGY RELIEF [Concomitant]
     Active Substance: FLUTICASONE PROPIONATE
  15. REPATHA [Concomitant]
     Active Substance: EVOLOCUMAB
  16. AMLODIPINE [Concomitant]
     Active Substance: AMLODIPINE BESYLATE
  17. LOSARTAN [Concomitant]
     Active Substance: LOSARTAN
  18. COLACE [Concomitant]
     Active Substance: DOCUSATE SODIUM
  19. OXYCODONE HYDROCHLORIDE [Concomitant]
     Active Substance: OXYCODONE HYDROCHLORIDE
  20. Lmx [Concomitant]
  21. DOXYCYCLINE [Concomitant]
     Active Substance: DOXYCYCLINE
  22. REPATHA [Concomitant]
     Active Substance: EVOLOCUMAB
  23. AMLODIPINE BESYLATE [Concomitant]
     Active Substance: AMLODIPINE BESYLATE
  24. OXYCODONE [Concomitant]
     Active Substance: OXYCODONE
  25. PROBIOTICS NOS [Concomitant]
     Active Substance: PROBIOTICS NOS
  26. DIPHENHYDRAMINE HYDROCHLORIDE [Concomitant]
     Active Substance: DIPHENHYDRAMINE HYDROCHLORIDE
  27. LOSARTAN POTASSIUM [Concomitant]
     Active Substance: LOSARTAN POTASSIUM
  28. DOXYCYCLINE HYCLATE [Concomitant]
     Active Substance: DOXYCYCLINE HYCLATE
  29. LIDOCAINE [Concomitant]
     Active Substance: LIDOCAINE
  30. CORTISONE [Concomitant]
     Active Substance: CORTISONE
  31. PERCOCET [Concomitant]
     Active Substance: ACETAMINOPHEN\OXYCODONE HYDROCHLORIDE
  32. DICYCLOMINE HYDROCHLORIDE [Concomitant]
     Active Substance: DICYCLOMINE HYDROCHLORIDE
  33. LACTASE [Concomitant]
     Active Substance: LACTASE
  34. ASPIRIN [Concomitant]
     Active Substance: ASPIRIN
  35. MONTELUKAST SODIUM [Concomitant]
     Active Substance: MONTELUKAST SODIUM
  36. POLYETHYLENE GLYCOL [Concomitant]
     Active Substance: POLYETHYLENE GLYCOL

REACTIONS (30)
  - Diverticulitis [Unknown]
  - Infusion related reaction [Unknown]
  - Weight decreased [Unknown]
  - Eating disorder [Unknown]
  - Seasonal allergy [Unknown]
  - Tooth infection [Not Recovered/Not Resolved]
  - Vertigo positional [Unknown]
  - Tinnitus [Unknown]
  - Irritable bowel syndrome [Unknown]
  - Productive cough [Unknown]
  - Ear infection [Recovered/Resolved]
  - Sciatica [Unknown]
  - Infusion site discharge [Unknown]
  - Dental caries [Unknown]
  - COVID-19 [Unknown]
  - Illness [Unknown]
  - Sensitive skin [Unknown]
  - Incorrect dose administered [Unknown]
  - Localised infection [Unknown]
  - Asthma [Unknown]
  - Dermatitis contact [Unknown]
  - Balance disorder [Unknown]
  - Infusion site discolouration [Unknown]
  - Oropharyngeal pain [Unknown]
  - Somnolence [Unknown]
  - Chest pain [Unknown]
  - Infusion site erythema [Unknown]
  - Dizziness [Unknown]
  - Abdominal pain [Unknown]
  - Fatigue [Unknown]

NARRATIVE: CASE EVENT DATE: 20210324
